FAERS Safety Report 5722449-7 (Version None)
Quarter: 2008Q2

REPORT INFORMATION
  Report Type: 
  Country: None (occurrence: None)
  Receive Date: 20080429
  Receipt Date: 20071217
  Transmission Date: 20081010
  Serious: Yes (Other)
  Sender: FDA-Public Use
  Company Number: US-ASTRAZENECA-2007UW28523

PATIENT
  Age: 77 Year
  Sex: Female

DRUGS (8)
  1. NEXIUM [Suspect]
     Indication: DYSPEPSIA
     Route: 048
     Dates: end: 20070101
  2. AMLODIPINE [Concomitant]
  3. VENAZEPRIL [Concomitant]
  4. OMEPRAZOLE [Concomitant]
  5. ULTRASE MT20 [Concomitant]
  6. ALBUTEROL [Concomitant]
  7. AZMACORT [Concomitant]
  8. NASONEX [Concomitant]

REACTIONS (1)
  - PANCREATITIS [None]
